FAERS Safety Report 5149857-X (Version None)
Quarter: 2006Q4

REPORT INFORMATION
  Report Type: 
  Country: None (occurrence: None)
  Receive Date: 20060918
  Receipt Date: 20060105
  Transmission Date: 20070319
  Serious: Yes (Other)
  Sender: FDA-Public Use
  Company Number: US-JNJFOC-20060101898

PATIENT
  Age: 57 Year
  Sex: Female

DRUGS (1)
  1. TOPAMAX [Suspect]
     Indication: MIGRAINE PROPHYLAXIS
     Dosage: 50 MG, IN 1 DAY, ORAL
     Route: 048
     Dates: end: 20050101

REACTIONS (1)
  - HEPATIC ENZYME INCREASED [None]
